FAERS Safety Report 10388640 (Version 4)
Quarter: 2014Q4

REPORT INFORMATION
  Report Type: Report from Study
  Country: JP (occurrence: JP)
  Receive Date: 20140815
  Receipt Date: 20141107
  Transmission Date: 20150528
  Serious: Yes (Other)
  Sender: FDA-Public Use
  Company Number: JP-MERCK-1408JPN009369

PATIENT
  Age: 38 Year
  Sex: Male
  Weight: 68 kg

DRUGS (5)
  1. RIBAVIRIN. [Suspect]
     Active Substance: RIBAVIRIN
     Indication: CHRONIC HEPATITIS C
     Dosage: 800 MG, QD
     Route: 048
     Dates: start: 20140314, end: 20140703
  2. MEYLON [Concomitant]
     Active Substance: SODIUM BICARBONATE
     Indication: DIZZINESS
     Dosage: 40 ML, QD
     Route: 042
     Dates: start: 20140609, end: 2014
  3. SIMEPREVIR [Suspect]
     Active Substance: SIMEPREVIR
     Indication: CHRONIC HEPATITIS C
     Dosage: 100 MG, QD
     Route: 048
     Dates: start: 20140314, end: 20140605
  4. PEGINTRON [Suspect]
     Active Substance: PEGINTERFERON ALFA-2B
     Indication: CHRONIC HEPATITIS C
     Dosage: 1.5UG/KG WEEKLY
     Route: 058
     Dates: start: 20140314, end: 20140627
  5. SOLDEM 3A [Concomitant]
     Active Substance: CARBOHYDRATES\POTASSIUM CHLORIDE\SODIUM CHLORIDE\SODIUM LACTATE
     Indication: DIZZINESS
     Dosage: 200 ML, QD
     Route: 041
     Dates: start: 20140609

REACTIONS (8)
  - Blood uric acid increased [Recovering/Resolving]
  - Dizziness [Recovering/Resolving]
  - Meniere^s disease [Recovering/Resolving]
  - Rash [Recovering/Resolving]
  - Haemolytic anaemia [Recovered/Resolved]
  - Blood bilirubin increased [Recovering/Resolving]
  - Malaise [Recovered/Resolved]
  - Drug effect incomplete [Unknown]

NARRATIVE: CASE EVENT DATE: 20140314
